FAERS Safety Report 11849161 (Version 1)
Quarter: 2015Q4

REPORT INFORMATION
  Report Type: Spontaneous
  Country: CA (occurrence: CA)
  Receive Date: 20151218
  Receipt Date: 20151218
  Transmission Date: 20160305
  Serious: Yes (Life-Threatening, Other)
  Sender: FDA-Public Use
  Company Number: CA-TEVA-618922ACC

PATIENT
  Age: 66 Year
  Sex: Male
  Weight: 80 kg

DRUGS (10)
  1. COLCHICINE. [Concomitant]
     Active Substance: COLCHICINE
  2. NAPROXEN. [Concomitant]
     Active Substance: NAPROXEN
  3. HYDROCHLOROTHIAZIDE. [Concomitant]
     Active Substance: HYDROCHLOROTHIAZIDE
  4. TETRACYCLINE [Concomitant]
     Active Substance: TETRACYCLINE
  5. ACETAMINOPHEN. [Concomitant]
     Active Substance: ACETAMINOPHEN
  6. RAMIPRIL. [Concomitant]
     Active Substance: RAMIPRIL
  7. IBUPROFEN. [Concomitant]
     Active Substance: IBUPROFEN
  8. GLICLAZIDE [Concomitant]
     Active Substance: GLICLAZIDE
  9. ROSUVASTATIN [Concomitant]
     Active Substance: ROSUVASTATIN
  10. METFORMIN [Suspect]
     Active Substance: METFORMIN HYDROCHLORIDE
     Indication: TYPE 2 DIABETES MELLITUS
     Dosage: 2550 MILLIGRAM DAILY;
     Route: 048

REACTIONS (4)
  - Depressed level of consciousness [Unknown]
  - Haematemesis [Unknown]
  - Lactic acidosis [Unknown]
  - Vomiting [Unknown]
